FAERS Safety Report 9170551 (Version 2)
Quarter: 2013Q2

REPORT INFORMATION
  Report Type: Spontaneous
  Country: US (occurrence: None)
  Receive Date: 20130307
  Receipt Date: 20130408
  Transmission Date: 20140414
  Serious: Yes (Other)
  Sender: FDA-Public Use
  Company Number: AUR-APL-2013-01953

PATIENT
  Age: 47 Year
  Sex: Male
  Weight: 127 kg

DRUGS (9)
  1. VENLAFAXINE [Suspect]
     Indication: DEPRESSION
     Route: 048
     Dates: start: 201101, end: 20130101
  2. EFFEXOR XR [Suspect]
     Indication: BIPOLAR I DISORDER
     Route: 048
     Dates: start: 2006, end: 20110104
  3. EFFEXOR XR [Suspect]
     Indication: BIPOLAR I DISORDER
     Route: 048
     Dates: start: 2006, end: 20110104
  4. EFFEXOR XR [Suspect]
     Indication: BIPOLAR DISORDER
     Route: 048
     Dates: start: 2006, end: 20110104
  5. AMLODIPINE (AMLODIPINE) [Concomitant]
  6. GLIMEPIRIDE (GLIMEPIRIDE) [Concomitant]
  7. SYNTHROID (LEVOTHYROXINE SODIUM) [Concomitant]
  8. BENICAR (OLMESARTAN MEDOXOMIL) [Concomitant]
  9. ALBUTEROL (SALBUTAMOL) [Concomitant]

REACTIONS (20)
  - Drug administration error [None]
  - Wrong technique in drug usage process [None]
  - Disturbance in attention [None]
  - Anger [None]
  - Mood altered [None]
  - Feeling abnormal [None]
  - Mobility decreased [None]
  - Drug withdrawal syndrome [None]
  - Dizziness [None]
  - Balance disorder [None]
  - Tinnitus [None]
  - Balance disorder [None]
  - Anxiety [None]
  - Palpitations [None]
  - Insomnia [None]
  - Somnolence [None]
  - Malaise [None]
  - Restlessness [None]
  - Off label use [None]
  - Emotional distress [None]
